FAERS Safety Report 6185034-1 (Version None)
Quarter: 2009Q2

REPORT INFORMATION
  Report Type: 
  Country: None (occurrence: None)
  Receive Date: 20090511
  Receipt Date: 20090501
  Transmission Date: 20091009
  Serious: Yes (Other)
  Sender: FDA-Public Use
  Company Number: US-BAYER-200919695NA

PATIENT
  Age: 73 Year
  Sex: Female

DRUGS (10)
  1. NIFEDIPINE [Suspect]
     Indication: CHEST PAIN
     Route: 048
     Dates: start: 20090417, end: 20090417
  2. DULCOLAX [Suspect]
     Indication: CONSTIPATION
     Dosage: TOTAL DAILY DOSE: 300 MG  UNIT DOSE: 100 MG
     Route: 048
     Dates: start: 20090415, end: 20090417
  3. LACTULOSE [Concomitant]
     Indication: CONSTIPATION
     Route: 048
     Dates: start: 20090418
  4. REGLAN [Concomitant]
     Route: 048
  5. DARVOCET [Concomitant]
     Indication: PAIN
     Route: 048
  6. LISINOPRIL [Concomitant]
     Indication: HYPERTENSION
     Route: 048
  7. METFORMIN HCL [Concomitant]
     Indication: DIABETES MELLITUS
     Route: 048
  8. LIPITOR [Concomitant]
     Indication: BLOOD CHOLESTEROL INCREASED
     Route: 048
  9. NEXIUM [Concomitant]
     Route: 048
  10. LANTUS [Concomitant]
     Indication: DIABETES MELLITUS

REACTIONS (2)
  - CHEST PAIN [None]
  - MUSCULAR WEAKNESS [None]
